FAERS Safety Report 6340748-5 (Version None)
Quarter: 2009Q3

REPORT INFORMATION
  Report Type: 
  Country: None (occurrence: None)
  Receive Date: 20090904
  Receipt Date: 20090901
  Transmission Date: 20100115
  Serious: Yes (Hospitalization)
  Sender: FDA-Public Use
  Company Number: FR-AVENTIS-200913257FR

PATIENT
  Age: 60 Year
  Sex: Female

DRUGS (13)
  1. ARAVA [Suspect]
     Indication: RHEUMATOID ARTHRITIS
     Route: 048
     Dates: start: 20080929, end: 20081020
  2. CARTREX [Suspect]
     Indication: RHEUMATOID ARTHRITIS
     Route: 048
     Dates: start: 20080929, end: 20081020
  3. NOVATREX                           /00113801/ [Concomitant]
     Indication: RHEUMATOID ARTHRITIS
     Route: 048
     Dates: start: 20080801, end: 20080901
  4. INIPOMP                            /01263201/ [Concomitant]
     Route: 048
     Dates: start: 20080929, end: 20081022
  5. POLARAMINE                         /00043702/ [Concomitant]
     Indication: URTICARIA
     Route: 042
     Dates: end: 20081024
  6. CIPROFLOXACIN HCL [Concomitant]
     Route: 048
     Dates: start: 20081021
  7. NORSET [Concomitant]
     Route: 048
     Dates: end: 20081024
  8. PRAZEPAM [Concomitant]
     Route: 048
     Dates: end: 20081024
  9. ACEBUTOLOL CHLORHYDRATE [Concomitant]
     Route: 048
     Dates: end: 20081022
  10. AERIUS                             /01398501/ [Concomitant]
     Route: 048
     Dates: end: 20081022
  11. ATARAX [Concomitant]
     Route: 048
     Dates: end: 20081023
  12. PRIMALAN [Concomitant]
     Route: 048
     Dates: end: 20081022
  13. AUGMENTIN '125' [Concomitant]
     Indication: URINARY TRACT INFECTION
     Dates: start: 20081001

REACTIONS (2)
  - CYTOLYTIC HEPATITIS [None]
  - HEPATOCELLULAR INJURY [None]
